FAERS Safety Report 12327694 (Version 7)
Quarter: 2016Q3

REPORT INFORMATION
  Report Type: Report from Study
  Country: JP (occurrence: JP)
  Receive Date: 20160503
  Receipt Date: 20160713
  Transmission Date: 20161109
  Serious: Yes (Hospitalization, Other)
  Sender: FDA-Public Use
  Company Number: JP-PFIZER INC-2016236511

PATIENT
  Age: 56 Year
  Sex: Female
  Weight: 69 kg

DRUGS (21)
  1. CELECOX [Suspect]
     Active Substance: CELECOXIB
     Indication: RHEUMATOID ARTHRITIS
     Dosage: 200 MG, 1X/DAY
     Route: 048
     Dates: start: 20140206
  2. METHOTREXATE. [Suspect]
     Active Substance: METHOTREXATE
     Dosage: 16 MG, ONCE WEEKLY
     Route: 048
     Dates: start: 20160601
  3. LODOPIN /00639201/ [Suspect]
     Active Substance: ZOTEPINE
     Indication: GASTRITIS EROSIVE
     Dosage: 5 MG, 1X/DAY
     Route: 048
  4. LODOPIN /00639201/ [Suspect]
     Active Substance: ZOTEPINE
     Indication: PSYCHOTIC DISORDER
  5. LOXONIN [Suspect]
     Active Substance: LOXOPROFEN SODIUM
     Indication: RHEUMATOID ARTHRITIS
     Dosage: 100 MG, 1X/DAY
     Route: 062
  6. MAGMITT [Suspect]
     Active Substance: MAGNESIUM OXIDE
     Indication: CONSTIPATION PROPHYLAXIS
     Dosage: 1000 MG, 1X/DAY
     Route: 048
  7. FOLIAMIN [Suspect]
     Active Substance: FOLIC ACID
     Indication: PROPHYLAXIS
     Dosage: 5 MG, 1X/DAY
     Route: 048
  8. ALLERMIST [Suspect]
     Active Substance: FLUTICASONE FUROATE
     Indication: SINUSITIS
     Dosage: 1.0 UG, 1X/DAY
     Dates: start: 20160205
  9. TAKEPRON [Suspect]
     Active Substance: LANSOPRAZOLE
     Indication: GASTRITIS EROSIVE
     Dosage: 15 MG, 1X/DAY
     Route: 048
  10. RISPERDAL [Suspect]
     Active Substance: RISPERIDONE
     Indication: PSYCHOTIC DISORDER
     Dosage: 6 MG, 1X/DAY
     Route: 048
  11. METHOTREXATE. [Suspect]
     Active Substance: METHOTREXATE
     Indication: RHEUMATOID ARTHRITIS
     Dosage: 16 MG, ONCE WEEKLY
     Route: 048
     Dates: end: 20160529
  12. ASP015K [Suspect]
     Active Substance: INVESTIGATIONAL PRODUCT
     Indication: RHEUMATOID ARTHRITIS
     Dosage: 100 MG OR 150 MG, 1X/DAY
     Route: 048
     Dates: start: 20151211, end: 20160419
  13. ISONARIF [Suspect]
     Active Substance: ISONIAZID\RIFAMPIN
     Indication: ANTIBIOTIC PROPHYLAXIS
     Dosage: 300 MG, 1X/DAY
     Route: 048
     Dates: start: 20150803
  14. MUCODYNE [Suspect]
     Active Substance: CARBOCYSTEINE
     Indication: SINUSITIS
     Dosage: 1500 MG, 1X/DAY
     Route: 048
  15. TRIPHEDINON [Suspect]
     Active Substance: TRIHEXYPHENIDYL HYDROCHLORIDE
     Indication: PSYCHOTIC DISORDER
     Dosage: 6 MG, 1X/DAY
     Route: 048
  16. DIOVAN [Suspect]
     Active Substance: VALSARTAN
     Indication: HYPERTENSION
     Dosage: 80 MG, 1X/DAY
     Route: 048
  17. ASP015K [Suspect]
     Active Substance: INVESTIGATIONAL PRODUCT
     Indication: RHEUMATOID ARTHRITIS
     Dosage: BLINDED, INFORMATION WITHHELD
     Dates: start: 20150917, end: 20151210
  18. LODOPIN [Suspect]
     Active Substance: ZOTEPINE
     Indication: PSYCHOTIC DISORDER
     Dosage: 50 MG, 1X/DAY
     Route: 048
  19. PREDNISOLONE. [Suspect]
     Active Substance: PREDNISOLONE
     Indication: RHEUMATOID ARTHRITIS
     Dosage: 3 MG, 1X/DAY
     Route: 048
  20. ONEALFA [Suspect]
     Active Substance: ALFACALCIDOL
     Indication: OSTEOPOROSIS
     Dosage: 0.5 UG, 1X/DAY
     Route: 048
  21. KLARICID /00984601/ [Suspect]
     Active Substance: CLARITHROMYCIN
     Indication: SINUSITIS
     Dosage: 200 MG, 1X/DAY
     Route: 048

REACTIONS (1)
  - Breast cancer [Recovering/Resolving]

NARRATIVE: CASE EVENT DATE: 20160419
